FAERS Safety Report 15818339 (Version 1)
Quarter: 2019Q1

REPORT INFORMATION
  Report Type: Spontaneous
  Country: US (occurrence: US)
  Receive Date: 20190113
  Receipt Date: 20190113
  Transmission Date: 20190417
  Serious: No
  Sender: FDA-Public Use
  Company Number: US-COOPERSURGICAL, INC.-US-2018CPS021512

PATIENT

DRUGS (1)
  1. PARAGARD T 380A [Suspect]
     Active Substance: COPPER
     Indication: CONTRACEPTION
     Dosage: UNK
     Route: 065
     Dates: start: 20100208, end: 20171002

REACTIONS (14)
  - Dyspareunia [Unknown]
  - Device breakage [Unknown]
  - Foreign body in reproductive tract [Unknown]
  - Menometrorrhagia [Unknown]
  - Depression [Unknown]
  - Dysmenorrhoea [Unknown]
  - Device material issue [Unknown]
  - Abdominal pain [Unknown]
  - Anxiety [Unknown]
  - Emotional distress [Unknown]
  - Vaginal haemorrhage [Unknown]
  - Fatigue [Unknown]
  - Palpitations [Unknown]
  - Vaginal discharge [Unknown]

NARRATIVE: CASE EVENT DATE: 20171002
